FAERS Safety Report 24921214 (Version 1)
Quarter: 2025Q1

REPORT INFORMATION
  Report Type: Spontaneous
  Country: IN (occurrence: IN)
  Receive Date: 20250204
  Receipt Date: 20250204
  Transmission Date: 20250409
  Serious: Yes (Death, Life-Threatening, Other)
  Sender: AMGEN
  Company Number: IN-AMGEN-INDSP2025019028

PATIENT

DRUGS (9)
  1. FILGRASTIM [Suspect]
     Active Substance: FILGRASTIM
     Indication: Haematopoietic stem cell mobilisation
     Dosage: 5 MICROGRAM/KILOGRAM, QD
     Route: 065
  2. CYCLOPHOSPHAMIDE [Concomitant]
     Active Substance: CYCLOPHOSPHAMIDE
     Route: 065
  3. CYCLOSPORINE [Concomitant]
     Active Substance: CYCLOSPORINE
     Indication: Prophylaxis
     Route: 065
  4. METHOTREXATE [Concomitant]
     Active Substance: METHOTREXATE
     Indication: Prophylaxis
     Route: 065
  5. LAPINE T-LYMPHOCYTE IMMUNE GLOBULIN [Concomitant]
     Active Substance: LAPINE T-LYMPHOCYTE IMMUNE GLOBULIN
     Indication: Prophylaxis
     Route: 065
  6. TACROLIMUS [Concomitant]
     Active Substance: TACROLIMUS
     Indication: Prophylaxis
  7. MYCOPHENOLIC ACID [Concomitant]
     Active Substance: MYCOPHENOLIC ACID
     Indication: Prophylaxis
     Route: 065
  8. FLUCONAZOLE [Concomitant]
     Active Substance: FLUCONAZOLE
     Indication: Prophylaxis
     Route: 065
  9. ACYCLOVIR [Concomitant]
     Active Substance: ACYCLOVIR
     Indication: Prophylaxis

REACTIONS (13)
  - Venoocclusive liver disease [Fatal]
  - Paraplegia [Fatal]
  - Klebsiella sepsis [Fatal]
  - Bacterial infection [Fatal]
  - Acute graft versus host disease [Fatal]
  - Cystitis haemorrhagic [Unknown]
  - Acute kidney injury [Unknown]
  - Cardiac dysfunction [Unknown]
  - Chronic graft versus host disease [Unknown]
  - Viral infection [Unknown]
  - Cytomegalovirus viraemia [Unknown]
  - Fungal infection [Unknown]
  - Liver disorder [Unknown]
